FAERS Safety Report 12079500 (Version 1)
Quarter: 2016Q1

REPORT INFORMATION
  Report Type: Report from Study
  Country: ES (occurrence: ES)
  Receive Date: 20160216
  Receipt Date: 20160216
  Transmission Date: 20160526
  Serious: Yes (Death, Hospitalization)
  Sender: FDA-Public Use
  Company Number: ES-PFIZER INC-2016089142

PATIENT
  Age: 55 Year
  Sex: Male

DRUGS (5)
  1. INACID [Interacting]
     Active Substance: INDOMETHACIN
     Dosage: 25 MG, CAPSULES, 10 CPS
     Route: 048
     Dates: start: 20141101, end: 20141101
  2. ORFIDAL [Interacting]
     Active Substance: LORAZEPAM
     Dosage: 1MG TABLETS, 20 CPS
     Route: 048
     Dates: start: 20141101, end: 20141101
  3. STILNOX [Interacting]
     Active Substance: ZOLPIDEM TARTRATE
     Dosage: 10 MG FILL COATED TABLETS, 10 CPS
     Route: 048
     Dates: start: 20141101, end: 20141101
  4. TRAMADOL HCL [Interacting]
     Active Substance: TRAMADOL HYDROCHLORIDE
     Dosage: 10 DF, UNK
     Route: 048
     Dates: start: 20141101, end: 20141101
  5. LYRICA [Suspect]
     Active Substance: PREGABALIN
     Dosage: 150 MG HARD CAPSULES, 10 CP
     Route: 048
     Dates: start: 20141101, end: 20141101

REACTIONS (4)
  - Drug interaction [Fatal]
  - Acute kidney injury [Fatal]
  - Pancytopenia [Fatal]
  - Rhabdomyolysis [Fatal]

NARRATIVE: CASE EVENT DATE: 20141101
